FAERS Safety Report 5530419-7 (Version None)
Quarter: 2007Q4

REPORT INFORMATION
  Report Type: 
  Country: None (occurrence: None)
  Receive Date: 20071127
  Receipt Date: 20071127
  Transmission Date: 20080405
  Serious: No
  Sender: FDA-Public Use
  Company Number: None

PATIENT
  Age: 67 Year
  Sex: Male

DRUGS (2)
  1. CIPROFLOXACIN [Suspect]
     Indication: URINARY TRACT INFECTION
     Dosage: 500MG BID PO
     Route: 048
     Dates: start: 20071023, end: 20071030
  2. IODINE [Suspect]
     Indication: HAEMATURIA
     Dosage: ONCE IV
     Route: 042
     Dates: start: 20071030, end: 20071030

REACTIONS (1)
  - RASH [None]
